FAERS Safety Report 6638239-7 (Version None)
Quarter: 2010Q1

REPORT INFORMATION
  Report Type: 
  Country: None (occurrence: None)
  Receive Date: 20100317
  Receipt Date: 20100308
  Transmission Date: 20100710
  Serious: Yes (Other)
  Sender: FDA-Public Use
  Company Number: B0637936A

PATIENT
  Sex: Male

DRUGS (4)
  1. BETNOVATE [Suspect]
     Route: 065
     Dates: start: 20070101
  2. PROCHLORPERAZINE [Suspect]
     Indication: VERTIGO
     Route: 065
     Dates: start: 20070101
  3. PHENERGAN HCL [Suspect]
     Route: 065
  4. OINTMENT [Concomitant]
     Route: 065
     Dates: start: 20090101

REACTIONS (5)
  - CONDITION AGGRAVATED [None]
  - INSOMNIA [None]
  - PUSTULAR PSORIASIS [None]
  - RASH PRURITIC [None]
  - RASH PUSTULAR [None]
